FAERS Safety Report 7321750-3 (Version None)
Quarter: 2011Q1

REPORT INFORMATION
  Report Type: 
  Country: None (occurrence: None)
  Receive Date: 20110215
  Receipt Date: 20110203
  Transmission Date: 20110831
  Serious: Yes (Other)
  Sender: FDA-Public Use
  Company Number: ACO_21686_2011

PATIENT
  Age: 46 Year
  Sex: Female

DRUGS (8)
  1. NEXIUM [Concomitant]
  2. AMPYRA [Suspect]
     Indication: MULTIPLE SCLEROSIS
     Dosage: 10 MG, BID
     Dates: start: 20100501, end: 20110111
  3. REBIF [Suspect]
     Indication: MULTIPLE SCLEROSIS
     Dosage: 66 ?G, WEEKLY, SUBCUTANEOUS
     Route: 058
     Dates: start: 20090903
  4. ERGOCALCIFEROL [Concomitant]
  5. SANCTURA [Concomitant]
  6. FLOMAX /00889901/ (MORNIFLUMATE) [Concomitant]
  7. PAMELOR [Concomitant]
  8. ASPIRIN [Concomitant]

REACTIONS (3)
  - CONVULSION [None]
  - URINARY INCONTINENCE [None]
  - THERAPEUTIC RESPONSE UNEXPECTED [None]
